FAERS Safety Report 5232669-6 (Version None)
Quarter: 2007Q1

REPORT INFORMATION
  Report Type: 
  Country: None (occurrence: None)
  Receive Date: 20070206
  Receipt Date: 20070206
  Transmission Date: 20070707
  Serious: Yes (Other)
  Sender: FDA-Public Use
  Company Number: None

PATIENT
  Age: 35 Year
  Sex: Female
  Weight: 117.9352 kg

DRUGS (1)
  1. METADATE ER 40 MG [Suspect]
     Indication: ATTENTION DEFICIT/HYPERACTIVITY DISORDER
     Dosage: 40 MG DAILY PO
     Route: 048
     Dates: start: 20060615, end: 20070203

REACTIONS (9)
  - ANXIETY [None]
  - CARDIAC DISORDER [None]
  - DISTURBANCE IN ATTENTION [None]
  - HALLUCINATION, AUDITORY [None]
  - HALLUCINATION, VISUAL [None]
  - LIBIDO INCREASED [None]
  - PARANOIA [None]
  - PERSONALITY CHANGE [None]
  - TIC [None]
